FAERS Safety Report 16735922 (Version 1)
Quarter: 2019Q3

REPORT INFORMATION
  Report Type: Spontaneous
  Country: ES (occurrence: ES)
  Receive Date: 20190823
  Receipt Date: 20190823
  Transmission Date: 20191005
  Serious: Yes (Death, Other)
  Sender: FDA-Public Use
  Company Number: ES-MYLANLABS-2019M1078566

PATIENT
  Age: 83 Year
  Sex: Female

DRUGS (7)
  1. ENOXAPARINA [Interacting]
     Active Substance: ENOXAPARIN
     Indication: PULMONARY EMBOLISM
     Dosage: 60 MILLIGRAM, BID
     Route: 058
     Dates: start: 20181231, end: 20190104
  2. QUETIAPINE. [Concomitant]
     Active Substance: QUETIAPINE
     Indication: CONFUSIONAL STATE
     Dosage: 25 MILLIGRAM, QD
     Route: 065
     Dates: start: 20181231, end: 20190104
  3. PREDNISONE. [Suspect]
     Active Substance: PREDNISONE
     Indication: PRODUCT USED FOR UNKNOWN INDICATION
     Dosage: 15 MILLIGRAM, QD
     Route: 065
     Dates: start: 20181230, end: 20190104
  4. CEFTRIAXONE. [Concomitant]
     Active Substance: CEFTRIAXONE
     Indication: GENITOURINARY TRACT INFECTION
     Dosage: 1 GRAM, QD
     Route: 065
     Dates: start: 20190102, end: 20190104
  5. OMEPRAZOL                          /00661201/ [Concomitant]
     Active Substance: OMEPRAZOLE
     Indication: PROPHYLAXIS AGAINST GASTROINTESTINAL ULCER
     Dosage: 20 MILLIGRAM, QD
     Route: 065
     Dates: start: 20181214, end: 20190104
  6. FUROSEMIDE. [Concomitant]
     Active Substance: FUROSEMIDE
     Indication: CARDIAC FAILURE CHRONIC
     Dosage: 40 MILLIGRAM, QD
     Route: 065
     Dates: start: 20181212, end: 20190104
  7. OCTREOTIDE. [Concomitant]
     Active Substance: OCTREOTIDE
     Indication: ANGIODYSPLASIA
     Dosage: 50 MILLIGRAM, BID
     Route: 065
     Dates: start: 20181217, end: 20190104

REACTIONS (3)
  - Drug interaction [Fatal]
  - Retroperitoneal haematoma [Fatal]
  - Shock haemorrhagic [Fatal]

NARRATIVE: CASE EVENT DATE: 20190104
